FAERS Safety Report 6124852-2 (Version None)
Quarter: 2009Q1

REPORT INFORMATION
  Report Type: 
  Country: None (occurrence: None)
  Receive Date: 20090319
  Receipt Date: 20090305
  Transmission Date: 20090719
  Serious: Yes (Congenital Anomaly)
  Sender: FDA-Public Use
  Company Number: US-PFIZER INC-2009179049

PATIENT

DRUGS (6)
  1. AZITHROMYCIN [Suspect]
     Indication: SINUSITIS
     Dosage: TIMES 5 DAYS, TOOK 2 COURSES
     Route: 048
     Dates: start: 20090101
  2. BUPROPION HYDROCHLORIDE [Suspect]
     Indication: BIPOLAR DISORDER
     Dosage: 100 MG, 1X/DAY
     Route: 048
     Dates: start: 20081201, end: 20090201
  3. BUPROPION HYDROCHLORIDE [Suspect]
     Dosage: 100 MG, 1X/DAY
     Route: 048
     Dates: start: 20070801, end: 20080801
  4. VITAMIN TAB [Concomitant]
  5. FERROUS GLUCONATE [Concomitant]
  6. ASCORBIC ACID [Suspect]

REACTIONS (3)
  - CONGENITAL CENTRAL NERVOUS SYSTEM ANOMALY [None]
  - CYTOGENETIC ABNORMALITY [None]
  - DRUG EXPOSURE DURING PREGNANCY [None]
